FAERS Safety Report 8145489-X (Version None)
Quarter: 2012Q1

REPORT INFORMATION
  Report Type: 
  Country: None (occurrence: None)
  Receive Date: 20120217
  Receipt Date: 20120216
  Transmission Date: 20120608
  Serious: Yes (Death)
  Sender: FDA-Public Use
  Company Number: US-B.I. PHARMACEUTICALS,INC./RIDGEFIELD-2012-BP-03051BP

PATIENT
  Age: 75 Year
  Sex: Female

DRUGS (9)
  1. VITAMIN D [Concomitant]
     Indication: OSTEOPOROSIS
  2. COREG [Concomitant]
     Indication: CARDIAC FAILURE CONGESTIVE
  3. SYMBICORT [Concomitant]
  4. LASIX [Concomitant]
     Indication: CARDIAC FAILURE CONGESTIVE
  5. EXELON [Concomitant]
     Indication: DEMENTIA ALZHEIMER'S TYPE
  6. ACTONEL [Concomitant]
     Indication: OSTEOPOROSIS
  7. PRADAXA [Suspect]
     Indication: ATRIAL FIBRILLATION
     Dosage: 150 MG
     Route: 048
  8. SYNTHROID [Concomitant]
     Indication: HYPOTHYROIDISM
  9. NAMENDA [Concomitant]
     Indication: DEMENTIA ALZHEIMER'S TYPE

REACTIONS (2)
  - DEHYDRATION [None]
  - DEATH [None]
